FAERS Safety Report 18255459 (Version 3)
Quarter: 2020Q4

REPORT INFORMATION
  Report Type: Report from Study
  Country: None (occurrence: US)
  Receive Date: 20200911
  Receipt Date: 20201212
  Transmission Date: 20210113
  Serious: Yes (Hospitalization)
  Sender: FDA-Public Use
  Company Number: US-ABBVIE-19K-163-3154069-00

PATIENT
  Age: 84 Year
  Sex: Male
  Weight: 89.5 kg

DRUGS (4)
  1. IMBRUVICA [Suspect]
     Active Substance: IBRUTINIB
     Route: 048
  2. IMBRUVICA [Suspect]
     Active Substance: IBRUTINIB
     Indication: LYMPHOCYTIC LEUKAEMIA
     Route: 048
     Dates: start: 20190709
  3. IMBRUVICA [Suspect]
     Active Substance: IBRUTINIB
     Indication: CHRONIC LYMPHOCYTIC LEUKAEMIA
     Route: 048
     Dates: start: 20190709
  4. IMBRUVICA [Suspect]
     Active Substance: IBRUTINIB
     Route: 048
     Dates: start: 201907

REACTIONS (12)
  - Umbilical hernia [Recovering/Resolving]
  - Productive cough [Unknown]
  - Diarrhoea [Recovered/Resolved]
  - Arrhythmia [Unknown]
  - Cough [Unknown]
  - Diarrhoea [Not Recovered/Not Resolved]
  - Blood pressure abnormal [Unknown]
  - Depression [Unknown]
  - Respiratory tract congestion [Unknown]
  - Fatigue [Unknown]
  - Dehydration [Unknown]
  - Increased upper airway secretion [Unknown]

NARRATIVE: CASE EVENT DATE: 201907
